FAERS Safety Report 8846627 (Version 1)
Quarter: 2012Q4

REPORT INFORMATION
  Report Type: 
  Country: US (occurrence: US)
  Receive Date: 20121017
  Receipt Date: 20121017
  Transmission Date: 20130627
  Serious: No
  Sender: FDA-Public Use
  Company Number: US-VERTEX PHARMACEUTICAL INC.-2012-022708

PATIENT
  Age: 46 Year
  Sex: Male
  Weight: 117 kg

DRUGS (3)
  1. VX-950 [Suspect]
     Indication: HEPATITIS C
     Dosage: 750 mg, tid
     Route: 048
     Dates: start: 20121005
  2. RIBASPHERE [Suspect]
     Indication: HEPATITIS C
     Dosage: 3 tabs every am, 4 tabs every pm
     Route: 048
     Dates: start: 20121005
  3. PEGASYS [Concomitant]
     Indication: HEPATITIS C
     Dosage: 180 ?g, UNK
     Route: 058
     Dates: start: 20121005

REACTIONS (2)
  - Heart rate increased [Unknown]
  - Tinnitus [Unknown]
